FAERS Safety Report 22378057 (Version 5)
Quarter: 2025Q2

REPORT INFORMATION
  Report Type: Report from Study
  Country: US (occurrence: US)
  Receive Date: 20230529
  Receipt Date: 20250502
  Transmission Date: 20250716
  Serious: Yes (Hospitalization, Other)
  Sender: UCB
  Company Number: US-UCBSA-2023026972

PATIENT
  Sex: Female

DRUGS (2)
  1. LEVETIRACETAM [Suspect]
     Active Substance: LEVETIRACETAM
     Indication: Seizure
     Dosage: 500 MILLIGRAM, 2X/DAY (BID)
     Dates: start: 2007
  2. LEVETIRACETAM [Suspect]
     Active Substance: LEVETIRACETAM
     Indication: Product used for unknown indication

REACTIONS (21)
  - Cerebrovascular accident [Not Recovered/Not Resolved]
  - Seizure [Not Recovered/Not Resolved]
  - Coeliac disease [Not Recovered/Not Resolved]
  - Hypothyroidism [Not Recovered/Not Resolved]
  - Uterine cancer [Not Recovered/Not Resolved]
  - Lymphoma operation [Unknown]
  - Lymphoma [Unknown]
  - Immunodeficiency [Not Recovered/Not Resolved]
  - Oral herpes [Not Recovered/Not Resolved]
  - Rash [Not Recovered/Not Resolved]
  - Hysterectomy [Not Recovered/Not Resolved]
  - Product substitution issue [Unknown]
  - Erythema [Not Recovered/Not Resolved]
  - Dyspnoea [Unknown]
  - Migraine [Unknown]
  - Urticaria [Unknown]
  - Rash erythematous [Unknown]
  - Swollen tongue [Not Recovered/Not Resolved]
  - Lip swelling [Unknown]
  - Hypertension [Unknown]
  - Insurance issue [Unknown]
